FAERS Safety Report 8044655-1 (Version None)
Quarter: 2012Q1

REPORT INFORMATION
  Report Type: 
  Country: None (occurrence: None)
  Receive Date: 20120113
  Receipt Date: 20120105
  Transmission Date: 20120608
  Serious: Yes (Hospitalization)
  Sender: FDA-Public Use
  Company Number: US-US-EMD SERONO, INC.-7105458

PATIENT
  Sex: Male
  Weight: 102 kg

DRUGS (2)
  1. REBIF [Suspect]
     Indication: MULTIPLE SCLEROSIS
     Route: 058
     Dates: start: 20101208
  2. LIPITOR [Concomitant]
     Indication: BLOOD CHOLESTEROL INCREASED

REACTIONS (17)
  - GRIP STRENGTH DECREASED [None]
  - OVERDOSE [None]
  - PYREXIA [None]
  - INJECTION SITE SCAB [None]
  - MEMORY IMPAIRMENT [None]
  - PERIPHERAL VASCULAR DISORDER [None]
  - PARONYCHIA [None]
  - CONJUNCTIVITIS [None]
  - MULTIPLE SCLEROSIS RELAPSE [None]
  - THROMBOSIS [None]
  - CHOLELITHIASIS [None]
  - FEEDING DISORDER [None]
  - FAECALOMA [None]
  - DYSSTASIA [None]
  - INFECTION [None]
  - HYPERCAPNIA [None]
  - PULMONARY CONGESTION [None]
